FAERS Safety Report 14744374 (Version 1)
Quarter: 2018Q2

REPORT INFORMATION
  Report Type: Spontaneous
  Country: US (occurrence: US)
  Receive Date: 20180411
  Receipt Date: 20180411
  Transmission Date: 20180711
  Serious: Yes (Other)
  Sender: FDA-Public Use
  Company Number: US-ACCORD-065453

PATIENT
  Age: 29 Year
  Sex: Male

DRUGS (3)
  1. ETOPOSIDE. [Suspect]
     Active Substance: ETOPOSIDE
     Indication: TESTICULAR GERM CELL TUMOUR MIXED
     Dosage: ON DAYS 1-3 AND TWO MORE DAYS ADDED LATER IN TO CYCLE 1 PER THE GET-UG 13 PROTOCOL
  2. BLEOMYCIN [Suspect]
     Active Substance: BLEOMYCIN SULFATE
     Indication: TESTICULAR GERM CELL TUMOUR MIXED
  3. CISPLATIN. [Suspect]
     Active Substance: CISPLATIN
     Indication: TESTICULAR GERM CELL TUMOUR MIXED
     Dosage: ON DAYS 1-3 AND TWO MORE DAYS ADDED LATER IN TO CYCLE 1 PER THE GET-UG 13 PROTOCOL

REACTIONS (1)
  - Pneumothorax spontaneous [Unknown]
